FAERS Safety Report 9925188 (Version 1)
Quarter: 2014Q1

REPORT INFORMATION
  Report Type: Spontaneous
  Country: US (occurrence: None)
  Receive Date: 20140224
  Receipt Date: 20140224
  Transmission Date: 20141002
  Serious: Yes (Hospitalization)
  Sender: FDA-Public Use
  Company Number: 2192706

PATIENT
  Age: 16 Year
  Sex: Female

DRUGS (1)
  1. CYTARABINE [Suspect]
     Indication: LEUKAEMIC INFILTRATION BRAIN
     Route: 037

REACTIONS (8)
  - Pancytopenia [None]
  - Pyrexia [None]
  - Septic shock [None]
  - Multi-organ failure [None]
  - Neurological decompensation [None]
  - Condition aggravated [None]
  - Vasculitis cerebral [None]
  - Metastases to meninges [None]
